FAERS Safety Report 4346756-8 (Version None)
Quarter: 2004Q1

REPORT INFORMATION
  Report Type: 
  Country: None (occurrence: None)
  Receive Date: 20040329
  Receipt Date: 20040123
  Transmission Date: 20041129
  Serious: No
  Sender: FDA-Public Use
  Company Number: USA040157416

PATIENT
  Age: 50 Year
  Sex: Female

DRUGS (2)
  1. STRATTERA [Suspect]
     Indication: DEPRESSION
     Dosage: 80 MG/DAY
     Dates: start: 20031001
  2. SYNTHROID [Concomitant]

REACTIONS (7)
  - ABDOMINAL PAIN [None]
  - AGGRESSION [None]
  - CRYING [None]
  - DISTURBANCE IN ATTENTION [None]
  - DIZZINESS [None]
  - FATIGUE [None]
  - MOOD SWINGS [None]
